FAERS Safety Report 13977303 (Version 1)
Quarter: 2017Q3

REPORT INFORMATION
  Report Type: Spontaneous
  Country: US (occurrence: US)
  Receive Date: 20170915
  Receipt Date: 20170915
  Transmission Date: 20171128
  Serious: No
  Sender: FDA-Public Use
  Company Number: US-ROCHE-669248

PATIENT
  Age: 69 Year
  Sex: Male

DRUGS (1)
  1. TRASTUZUMAB. [Suspect]
     Active Substance: TRASTUZUMAB
     Indication: BREAST CANCER
     Dosage: UNK
     Route: 042

REACTIONS (3)
  - Rhinitis [Unknown]
  - Lacrimation increased [Unknown]
  - Parosmia [Unknown]

NARRATIVE: CASE EVENT DATE: 200909
